FAERS Safety Report 8050036-7 (Version None)
Quarter: 2012Q1

REPORT INFORMATION
  Report Type: 
  Country: None (occurrence: None)
  Receive Date: 20120117
  Receipt Date: 20120110
  Transmission Date: 20120608
  Serious: Yes (Death)
  Sender: FDA-Public Use
  Company Number: GB-SANOFI-AVENTIS-2012SA001858

PATIENT
  Age: 57 Year
  Sex: Male
  Weight: 99 kg

DRUGS (9)
  1. ATORVASTATIN CALCIUM [Concomitant]
     Route: 065
  2. EZETIMIBE [Concomitant]
     Route: 065
  3. EICOSAPENTAENOIC ACID [Concomitant]
     Route: 065
  4. TRIMETHOPRIM [Concomitant]
     Route: 065
  5. RAMIPRIL [Concomitant]
     Route: 065
  6. LORATADINE [Concomitant]
     Route: 065
  7. METOPROLOL TARTRATE [Concomitant]
     Route: 065
  8. DRONEDARONE HCL [Suspect]
     Indication: VENTRICULAR TACHYCARDIA
     Route: 048
     Dates: start: 20100722, end: 20111122
  9. ASPIRIN [Concomitant]
     Route: 065

REACTIONS (2)
  - OFF LABEL USE [None]
  - MYOCARDIAL INFARCTION [None]
